FAERS Safety Report 5818230-0 (Version None)
Quarter: 2008Q3

REPORT INFORMATION
  Report Type: 
  Country: None (occurrence: None)
  Receive Date: 20080722
  Receipt Date: 20080605
  Transmission Date: 20090109
  Serious: No
  Sender: FDA-Public Use
  Company Number: US-BAYER-200810631BCC

PATIENT
  Age: 60 Year
  Sex: Male
  Weight: 91 kg

DRUGS (4)
  1. ALEVE [Suspect]
     Indication: ANALGESIA
     Route: 048
     Dates: start: 20080203, end: 20080205
  2. WARFARIN SODIUM [Concomitant]
  3. DIURETIC [Concomitant]
  4. ALBUTEROL [Concomitant]

REACTIONS (2)
  - DIZZINESS [None]
  - MOBILITY DECREASED [None]
